FAERS Safety Report 16360836 (Version 1)
Quarter: 2019Q3

REPORT INFORMATION
  Report Type: Spontaneous
  Country: US (occurrence: US)
  Receive Date: 20190524
  Receipt Date: 20190524
  Transmission Date: 20191004
  Serious: No
  Sender: FDA-Public Use
  Company Number: None

PATIENT
  Age: 62 Year
  Sex: Female
  Weight: 81 kg

DRUGS (3)
  1. CURCUMIM VIT C [Concomitant]
  2. VIT D3 OMEGA [Concomitant]
  3. ATENOLOL. [Suspect]
     Active Substance: ATENOLOL
     Indication: TACHYCARDIA
     Dosage: ?          QUANTITY:1 TABLET(S);?
     Route: 048
     Dates: start: 20190520, end: 20190524

REACTIONS (5)
  - Chest pain [None]
  - Abdominal pain upper [None]
  - Abdominal pain [None]
  - Dyspepsia [None]
  - Oropharyngeal pain [None]

NARRATIVE: CASE EVENT DATE: 20190520
